FAERS Safety Report 8506930-3 (Version None)
Quarter: 2012Q3

REPORT INFORMATION
  Report Type: 
  Country: None (occurrence: None)
  Receive Date: 20120703
  Receipt Date: 20120621
  Transmission Date: 20120928
  Serious: Yes (Other)
  Sender: FDA-Public Use
  Company Number: 2012SP034661

PATIENT
  Age: 25 Year
  Sex: Female

DRUGS (3)
  1. EFFEXOR XR [Suspect]
     Indication: ANXIETY
     Dosage: PO : 150 MG; PO
     Route: 048
  2. EFFEXOR XR [Suspect]
     Indication: DEPRESSION
     Dosage: PO : 150 MG; PO
     Route: 048
  3. NUVARING [Suspect]
     Indication: CONTRACEPTION

REACTIONS (5)
  - DEJA VU [None]
  - NAUSEA [None]
  - PANIC REACTION [None]
  - HYPERHIDROSIS [None]
  - GRAND MAL CONVULSION [None]
